FAERS Safety Report 8682737 (Version 5)
Quarter: 2013Q3

REPORT INFORMATION
  Report Type: Report from Study
  Country: US (occurrence: US)
  Receive Date: 20120725
  Receipt Date: 20130806
  Transmission Date: 20140515
  Serious: Yes (Other)
  Sender: FDA-Public Use
  Company Number: PHEH2012US014374

PATIENT
  Age: 46 Year
  Sex: Female
  Weight: 59 kg

DRUGS (8)
  1. GILENYA [Suspect]
     Indication: MULTIPLE SCLEROSIS
     Dosage: 0.5 MG, QD
     Route: 048
     Dates: start: 20120621, end: 20120720
  2. GILENYA [Suspect]
     Dosage: 0.5 MG, QD
     Route: 048
  3. LOSARTAN [Concomitant]
     Dosage: UNK UKN, UNK
  4. BACLOFEN [Concomitant]
     Indication: MUSCLE SPASMS
     Dosage: 10 MG, QHS
     Route: 048
  5. DEXEDRINE [Concomitant]
     Indication: FATIGUE
     Dosage: 5 MG, PRN
     Route: 048
  6. CYMBALTA [Concomitant]
     Indication: DEPRESSION
     Dosage: 60 MG, UNK
     Route: 048
  7. IMITREX [Concomitant]
     Indication: MIGRAINE
     Dosage: UNK UKN, PRN
     Route: 048
  8. CHANTIX [Concomitant]

REACTIONS (2)
  - Blood pressure decreased [Recovering/Resolving]
  - Dizziness [Recovering/Resolving]
